FAERS Safety Report 23099719 (Version 2)
Quarter: 2023Q4

REPORT INFORMATION
  Report Type: Report from Study
  Country: CO (occurrence: CO)
  Receive Date: 20231024
  Receipt Date: 20231124
  Transmission Date: 20240110
  Serious: Yes (Death, Other)
  Sender: FDA-Public Use
  Company Number: CO-002147023-NVSC2023CO227508

PATIENT
  Age: 57 Year
  Sex: Female

DRUGS (2)
  1. KISQALI [Suspect]
     Active Substance: RIBOCICLIB
     Indication: Breast cancer metastatic
     Dosage: UNK
     Route: 048
  2. KISQALI [Suspect]
     Active Substance: RIBOCICLIB
     Dosage: UNK (FROM APPROXIMATELY 4 YEARS AGO TO AT THE BEGINNING OF OCTOBER 2023)
     Route: 065

REACTIONS (3)
  - Death [Fatal]
  - Metastases to bone [Unknown]
  - Metastases to liver [Unknown]

NARRATIVE: CASE EVENT DATE: 20230901
